FAERS Safety Report 22793280 (Version 2)
Quarter: 2024Q2

REPORT INFORMATION
  Report Type: Spontaneous
  Country: IT (occurrence: IT)
  Receive Date: 20230807
  Receipt Date: 20240423
  Transmission Date: 20240716
  Serious: Yes (Other)
  Sender: FDA-Public Use
  Company Number: IT-SANDOZ-SDZ2023IT010262

PATIENT
  Age: 65 Year
  Sex: Male

DRUGS (2)
  1. EVEROLIMUS [Suspect]
     Active Substance: EVEROLIMUS
     Indication: Immunosuppression
     Dosage: 1.25 MG, QD
     Route: 065
     Dates: start: 201602
  2. EVEROLIMUS [Suspect]
     Active Substance: EVEROLIMUS
     Indication: Immunosuppressant drug therapy
     Dosage: 1 MG, QD
     Route: 065

REACTIONS (2)
  - Elephantiasis nostras verrucosa [Not Recovered/Not Resolved]
  - Lymphoedema [Unknown]
